FAERS Safety Report 4505832-7 (Version None)
Quarter: 2004Q4

REPORT INFORMATION
  Report Type: 
  Country: None (occurrence: None)
  Receive Date: 20041025
  Receipt Date: 20040507
  Transmission Date: 20050328
  Serious: Yes (Hospitalization)
  Sender: FDA-Public Use
  Company Number: US-JNJFOC-20040305620

PATIENT
  Age: 74 Year
  Sex: Female
  Weight: 65.318 kg

DRUGS (10)
  1. REMICADE [Suspect]
     Indication: RHEUMATOID ARTHRITIS
     Dosage: INTRAVENOUS; SEE IMAGE
     Route: 042
     Dates: start: 20000914
  2. REMICADE [Suspect]
     Indication: RHEUMATOID ARTHRITIS
     Dosage: INTRAVENOUS; SEE IMAGE
     Route: 042
     Dates: start: 20030102
  3. REMICADE [Suspect]
     Indication: RHEUMATOID ARTHRITIS
     Dosage: INTRAVENOUS; SEE IMAGE
     Route: 042
     Dates: start: 20031125
  4. REMICADE [Suspect]
     Indication: RHEUMATOID ARTHRITIS
     Dosage: INTRAVENOUS; SEE IMAGE
     Route: 042
     Dates: start: 20040102
  5. PREDNISONE [Concomitant]
  6. COREG [Concomitant]
  7. NEXIUM [Concomitant]
  8. PRAVACHOL [Concomitant]
  9. MULTIVITAMIN (MULTIVITAMINS) [Concomitant]
  10. MAVIK [Concomitant]

REACTIONS (1)
  - CARDIAC FAILURE CONGESTIVE [None]
